FAERS Safety Report 4269155-6 (Version None)
Quarter: 2004Q1

REPORT INFORMATION
  Report Type: 
  Country: None (occurrence: None)
  Receive Date: 20040109
  Receipt Date: 20040102
  Transmission Date: 20041129
  Serious: Yes (Hospitalization)
  Sender: FDA-Public Use
  Company Number: 230001K04USA

PATIENT
  Sex: Female

DRUGS (3)
  1. REBIF [Suspect]
     Indication: MULTIPLE SCLEROSIS
     Dates: start: 20031001
  2. LEVOTHYROXINE SODIUM [Concomitant]
  3. VALSARTAN [Concomitant]

REACTIONS (6)
  - BLADDER DISORDER [None]
  - CHOKING [None]
  - COUGH [None]
  - DEHYDRATION [None]
  - DRY MOUTH [None]
  - FLUID INTAKE REDUCED [None]
